FAERS Safety Report 18712903 (Version 4)
Quarter: 2021Q1

REPORT INFORMATION
  Report Type: Report from Study
  Country: US (occurrence: US)
  Receive Date: 20210107
  Receipt Date: 20210323
  Transmission Date: 20210419
  Serious: Yes (Hospitalization)
  Sender: FDA-Public Use
  Company Number: NVSC2021US000893

PATIENT
  Sex: Male

DRUGS (5)
  1. COSENTYX [Suspect]
     Active Substance: SECUKINUMAB
     Dosage: 300 MG, QMO
     Route: 058
  2. COSENTYX [Suspect]
     Active Substance: SECUKINUMAB
     Dosage: 2 DF, Q4W (FIRST WEEK OF DECEMBER 2020)
     Route: 058
     Dates: start: 202012
  3. COSENTYX [Suspect]
     Active Substance: SECUKINUMAB
     Indication: PSORIASIS
     Dosage: 2 DF, Q4W (2 PENS (300 MG))
     Route: 058
  4. COSENTYX [Suspect]
     Active Substance: SECUKINUMAB
     Indication: PSORIATIC ARTHROPATHY
     Dosage: 150 MG, Q4W
     Route: 058
  5. MYCOPHENOLATE [Concomitant]
     Active Substance: MYCOPHENOLIC ACID
     Indication: PRODUCT USED FOR UNKNOWN INDICATION
     Dosage: UNK
     Route: 065

REACTIONS (14)
  - Insomnia [Unknown]
  - Vision blurred [Unknown]
  - Swelling face [Recovering/Resolving]
  - Eye disorder [Unknown]
  - Neuralgia [Unknown]
  - Herpes zoster [Recovering/Resolving]
  - Anxiety [Unknown]
  - Photophobia [Unknown]
  - Ocular discomfort [Unknown]
  - Product dose omission issue [Unknown]
  - Eye swelling [Recovering/Resolving]
  - Pain [Unknown]
  - Eye pain [Unknown]
  - Psoriasis [Unknown]
